FAERS Safety Report 5578751-5 (Version None)
Quarter: 2007Q4

REPORT INFORMATION
  Report Type: 
  Country: None (occurrence: None)
  Receive Date: 20071228
  Receipt Date: 20071213
  Transmission Date: 20080405
  Serious: Yes (Death, Life-Threatening, Hospitalization)
  Sender: FDA-Public Use
  Company Number: E3810-01433-SOL-US

PATIENT
  Age: 76 Year
  Sex: Female
  Weight: 83 kg

DRUGS (22)
  1. ACIPHEX [Suspect]
     Indication: GASTROOESOPHAGEAL REFLUX DISEASE
     Dosage: 20 MG, ORAL
     Route: 048
     Dates: start: 20070314
  2. LIDICAIN VISCOUS (LIDOCAINE HYDROCHLORIDE) [Suspect]
     Dosage: ORAL
     Route: 048
     Dates: start: 20071113
  3. SERTRALINE [Concomitant]
  4. ASPIRIN [Concomitant]
  5. FLAGIL (METRONIDAZOLE) [Concomitant]
  6. CIPRO [Concomitant]
  7. ACETAMINOPHEN [Concomitant]
  8. DARVOCIT (PROPACET) [Concomitant]
  9. LANTUS [Concomitant]
  10. PREDNESIONE (PREDNISOLONE SODIUM PHOSPHATE) [Concomitant]
  11. NORVASC [Concomitant]
  12. DULEALAX (DUAL-LAX) [Concomitant]
  13. ATIVAN [Concomitant]
  14. SODIUM CHLORIDE [Concomitant]
  15. PROTONIX [Concomitant]
  16. VERAPARIL (VERAPAMIL) [Concomitant]
  17. ASPART [Concomitant]
  18. ALLAPURERIAL [Concomitant]
  19. ZEMPLAR [Concomitant]
  20. SENOKOT [Concomitant]
  21. PLAXIC (PLAX) [Concomitant]
  22. ARANESP [Concomitant]

REACTIONS (3)
  - CENTRAL LINE INFECTION [None]
  - COLITIS ISCHAEMIC [None]
  - SEPSIS [None]
